FAERS Safety Report 10961720 (Version 1)
Quarter: 2015Q1

REPORT INFORMATION
  Report Type: Report from Study
  Country: CA (occurrence: CA)
  Receive Date: 20150327
  Receipt Date: 20150327
  Transmission Date: 20150721
  Serious: Yes (Other)
  Sender: FDA-Public Use
  Company Number: CA-BAYER-2015-051235

PATIENT
  Sex: Female

DRUGS (1)
  1. MIRENA [Suspect]
     Active Substance: LEVONORGESTREL
     Dosage: 20 MCG/24HR, CONT
     Route: 015

REACTIONS (4)
  - Weight increased [Recovering/Resolving]
  - Weight decreased [None]
  - Procedural pain [Recovering/Resolving]
  - Embedded device [Recovering/Resolving]

NARRATIVE: CASE EVENT DATE: 201503
